FAERS Safety Report 5513987-0 (Version None)
Quarter: 2007Q4

REPORT INFORMATION
  Report Type: 
  Country: None (occurrence: None)
  Receive Date: 20071113
  Receipt Date: 20070831
  Transmission Date: 20080405
  Serious: Yes (Hospitalization)
  Sender: FDA-Public Use
  Company Number: PHHO2007US13359

PATIENT
  Age: 39 Year
  Sex: Female
  Weight: 92.3 kg

DRUGS (2)
  1. MYFORTIC [Suspect]
     Indication: RENAL TRANSPLANT
     Dosage: 720 MG, BID
     Dates: start: 20060318
  2. NEORAL [Suspect]
     Indication: RENAL TRANSPLANT
     Dosage: 250 MG, BID
     Dates: start: 20020502

REACTIONS (4)
  - CHEST PAIN [None]
  - HYPERGLYCAEMIA [None]
  - HYPERKALAEMIA [None]
  - NAUSEA [None]
